FAERS Safety Report 7212031-7 (Version None)
Quarter: 2010Q4

REPORT INFORMATION
  Report Type: 
  Country: None (occurrence: None)
  Receive Date: 20101228
  Receipt Date: 20101214
  Transmission Date: 20110411
  Serious: Yes (Other)
  Sender: FDA-Public Use
  Company Number: 20109172

PATIENT
  Sex: Male

DRUGS (1)
  1. LIORESAL [Suspect]
     Indication: MUSCLE SPASTICITY
     Dosage: 414 MCG, DAILY; INTRATHECAL
     Route: 037

REACTIONS (4)
  - IMPLANT SITE CELLULITIS [None]
  - IMPLANT SITE HAEMATOMA [None]
  - IMPLANT SITE SWELLING [None]
  - NO THERAPEUTIC RESPONSE [None]
